FAERS Safety Report 9710861 (Version 1)
Quarter: 2013Q4

REPORT INFORMATION
  Report Type: Spontaneous
  Country: None (occurrence: US)
  Receive Date: 20131126
  Receipt Date: 20131126
  Transmission Date: 20140711
  Serious: No
  Sender: FDA-Public Use
  Company Number: US-BRISTOL-MYERS SQUIBB COMPANY-19026723

PATIENT
  Sex: Female

DRUGS (2)
  1. BYDUREON [Suspect]
     Indication: BLOOD GLUCOSE ABNORMAL
     Route: 058
     Dates: start: 201305
  2. METFORMIN [Concomitant]

REACTIONS (2)
  - Drug ineffective [Unknown]
  - Decreased appetite [Recovered/Resolved]
